FAERS Safety Report 24691114 (Version 2)
Quarter: 2024Q4

REPORT INFORMATION
  Report Type: Spontaneous
  Country: SK (occurrence: SK)
  Receive Date: 20241203
  Receipt Date: 20241214
  Transmission Date: 20250114
  Serious: Yes (Disabling, Other)
  Sender: EMD SERONO INC
  Company Number: SK-Merck Healthcare KGaA-2024062844

PATIENT
  Age: 7 Year
  Sex: Male

DRUGS (2)
  1. SAIZEN [Suspect]
     Active Substance: SOMATROPIN
     Indication: Small for dates baby
  2. SAIZEN [Suspect]
     Active Substance: SOMATROPIN
     Indication: Short stature

REACTIONS (3)
  - Blindness unilateral [Unknown]
  - Age-related macular degeneration [Unknown]
  - Paresis [Unknown]

NARRATIVE: CASE EVENT DATE: 20240701
